FAERS Safety Report 8093543-3 (Version None)
Quarter: 2012Q1

REPORT INFORMATION
  Report Type: 
  Country: None (occurrence: None)
  Receive Date: 20120131
  Receipt Date: 20120125
  Transmission Date: 20120608
  Serious: Yes (Other)
  Sender: FDA-Public Use
  Company Number: US-SANOFI-AVENTIS-2012SA006062

PATIENT

DRUGS (3)
  1. OXALIPLATIN [Suspect]
     Indication: PANCREATIC CARCINOMA
     Dosage: DOSE: 100 MG/M2 ON DAY 2 OVER 2 HOUR VIA A CENTRAL CATHETER.
     Route: 065
  2. BEVACIZUMAB [Suspect]
     Indication: PANCREATIC CARCINOMA
     Dosage: DOSE: 10 MG/KG ON DAY 1 OF EACH 2 WEEK CYCLE, THE INITIAL DOSE GIVEN OVER 90 MIN THEN 30?60 MIN
     Route: 065
  3. GEMCITABINE [Suspect]
     Indication: PANCREATIC CARCINOMA
     Dosage: DOSE: 1,000 MG/M2 VIA A ?XED-DOSE-RATE INFUSION OF 10 MG/M2/MIN (100 MIN) ON DAY 1.
     Route: 065

REACTIONS (1)
  - CEREBROVASCULAR ACCIDENT [None]
